FAERS Safety Report 5925719-2 (Version None)
Quarter: 2008Q4

REPORT INFORMATION
  Report Type: 
  Country: None (occurrence: None)
  Receive Date: 20081021
  Receipt Date: 20081016
  Transmission Date: 20090506
  Serious: Yes (Life-Threatening, Hospitalization, Disabling, Other)
  Sender: FDA-Public Use
  Company Number: ES-CELGENEUS-144-21880-08090621

PATIENT
  Sex: Female
  Weight: 52 kg

DRUGS (2)
  1. REVLIMID [Suspect]
     Indication: MULTIPLE MYELOMA
     Route: 048
     Dates: start: 20080311
  2. REVLIMID [Suspect]
     Route: 048
     Dates: start: 20080522, end: 20080616

REACTIONS (3)
  - GENERAL PHYSICAL HEALTH DETERIORATION [None]
  - MUSCULAR WEAKNESS [None]
  - RADIATION SKIN INJURY [None]
